FAERS Safety Report 24872821 (Version 1)
Quarter: 2025Q1

REPORT INFORMATION
  Report Type: Spontaneous
  Country: CN (occurrence: CN)
  Receive Date: 20250122
  Receipt Date: 20250122
  Transmission Date: 20250409
  Serious: Yes (Other)
  Sender: ROCHE
  Company Number: CN-ROCHE-10000187136

PATIENT
  Age: 56 Year
  Sex: Female
  Weight: 45 kg

DRUGS (3)
  1. TRASTUZUMAB [Suspect]
     Active Substance: TRASTUZUMAB
     Indication: Breast cancer
     Dosage: THE THERAPY START DATE OF THE  DRUG PLEASE REFERENCE DESCRIPTION
     Route: 042
     Dates: start: 20241113, end: 20241113
  2. CARBOPLATIN [Suspect]
     Active Substance: CARBOPLATIN
     Indication: Breast cancer
     Dosage: THE THERAPY START DATE OF THE  DRUG PLEASE REFERENCE DESCRIPTION
     Route: 042
     Dates: start: 20241114, end: 20241114
  3. PACLITAXEL [Suspect]
     Active Substance: PACLITAXEL
     Indication: Breast cancer
     Dosage: THE THERAPY START DATE OF THE  DRUG PLEASE REFERENCE DESCRIPTION
     Route: 042
     Dates: start: 20241114, end: 20241114

REACTIONS (1)
  - Myelosuppression [Recovering/Resolving]

NARRATIVE: CASE EVENT DATE: 20241129
